FAERS Safety Report 10565308 (Version 1)
Quarter: 2014Q4

REPORT INFORMATION
  Report Type: Spontaneous
  Country: US (occurrence: None)
  Receive Date: 20141103
  Receipt Date: 20141103
  Transmission Date: 20150529
  Serious: No
  Sender: FDA-Public Use
  Company Number: 2014-00094

PATIENT
  Age: 61 Year
  Sex: Female
  Weight: 78.93 kg

DRUGS (4)
  1. UNSPECIFIED ANALGESICS [Concomitant]
  2. UNSPECIFIED OTC ALLERGY MEDICATION [Concomitant]
  3. ZICAM COLD REMEDY NASAL GEL [Suspect]
     Active Substance: ZINC ACETATE\ZINC GLUCONATE
     Indication: NASOPHARYNGITIS
     Dosage: NOS
     Route: 045
     Dates: start: 2003, end: 2009
  4. ZICAM COLD REMEDY NASAL GEL [Suspect]
     Active Substance: ZINC ACETATE\ZINC GLUCONATE
     Indication: INFLUENZA
     Dosage: NOS
     Route: 045
     Dates: start: 2003, end: 2009

REACTIONS (1)
  - Hyposmia [None]

NARRATIVE: CASE EVENT DATE: 2009
